FAERS Safety Report 7720385-8 (Version None)
Quarter: 2011Q3

REPORT INFORMATION
  Report Type: 
  Country: None (occurrence: None)
  Receive Date: 20110825
  Receipt Date: 20110809
  Transmission Date: 20111222
  Serious: Yes (Other)
  Sender: FDA-Public Use
  Company Number: 2011MA011570

PATIENT
  Sex: Female

DRUGS (1)
  1. BUPROPION HYDROCHLORIDE (WELLBUTRIN XL) [Suspect]
     Indication: OVERDOSE
     Dosage: 3.6 GM;1X;PO
     Route: 048

REACTIONS (8)
  - PALPITATIONS [None]
  - GRAND MAL CONVULSION [None]
  - ELECTROCARDIOGRAM ST SEGMENT ELEVATION [None]
  - SINUS TACHYCARDIA [None]
  - DIZZINESS [None]
  - VOMITING [None]
  - ELECTROCARDIOGRAM ST SEGMENT DEPRESSION [None]
  - OVERDOSE [None]
